FAERS Safety Report 18704221 (Version 2)
Quarter: 2021Q1

REPORT INFORMATION
  Report Type: Report from Study
  Country: None (occurrence: US)
  Receive Date: 20210106
  Receipt Date: 20210208
  Transmission Date: 20210419
  Serious: Yes (Hospitalization)
  Sender: FDA-Public Use
  Company Number: US-ABBVIE-21K-163-3716487-00

PATIENT
  Age: 91 Year
  Sex: Male

DRUGS (2)
  1. IMBRUVICA [Suspect]
     Active Substance: IBRUTINIB
     Indication: CHRONIC LYMPHOCYTIC LEUKAEMIA
     Route: 048
     Dates: start: 202010, end: 20201229
  2. IMBRUVICA [Suspect]
     Active Substance: IBRUTINIB
     Indication: CHRONIC LYMPHOCYTIC LEUKAEMIA
     Route: 048
     Dates: start: 20201030

REACTIONS (4)
  - Fatigue [Not Recovered/Not Resolved]
  - Urinary tract infection [Unknown]
  - COVID-19 [Recovered/Resolved]
  - Depressed level of consciousness [Unknown]

NARRATIVE: CASE EVENT DATE: 20201229
